FAERS Safety Report 8051277-5 (Version None)
Quarter: 2012Q1

REPORT INFORMATION
  Report Type: 
  Country: None (occurrence: None)
  Receive Date: 20120117
  Receipt Date: 20120105
  Transmission Date: 20120608
  Serious: Yes (Hospitalization)
  Sender: FDA-Public Use
  Company Number: BR-MEDIMMUNE-MEDI-0013111

PATIENT
  Sex: Female
  Weight: 7.24 kg

DRUGS (12)
  1. SYNAGIS [Suspect]
     Indication: PNEUMONIA
  2. PNEUMONIA VACCINE [Concomitant]
     Dates: start: 20100601, end: 20100601
  3. MEASLES VACCINE [Concomitant]
     Dates: start: 20100401, end: 20100401
  4. PNEUMONIA VACCINE [Concomitant]
     Dates: start: 20100301, end: 20100301
  5. SYNAGIS [Suspect]
     Route: 030
     Dates: start: 20100401, end: 20100813
  6. RANITIDINE [Concomitant]
     Route: 048
     Dates: start: 20101001
  7. DOMPERIDONE [Concomitant]
     Route: 048
     Dates: start: 20101001
  8. MULTI-VITAMIN [Concomitant]
     Dates: start: 20100118
  9. CHICKEN POX VACCINE [Concomitant]
     Dates: start: 20100401, end: 20100401
  10. RUBEOLA VACCINE [Concomitant]
     Dates: start: 20100401, end: 20100401
  11. FERROUS SULFATE TAB [Concomitant]
     Route: 048
     Dates: start: 20100118
  12. INFANTILE PARALYSIS VACCINE [Concomitant]
     Dates: start: 20100601, end: 20100601

REACTIONS (8)
  - PNEUMONIA [None]
  - LACRIMATION INCREASED [None]
  - PYREXIA [None]
  - LOWER RESPIRATORY TRACT INFECTION [None]
  - BRONCHIOLITIS [None]
  - INFLUENZA [None]
  - COUGH [None]
  - RHINORRHOEA [None]
